FAERS Safety Report 8354043-6 (Version None)
Quarter: 2012Q2

REPORT INFORMATION
  Report Type: 
  Country: None (occurrence: None)
  Receive Date: 20120511
  Receipt Date: 20120501
  Transmission Date: 20120825
  Serious: Yes (Other)
  Sender: FDA-Public Use
  Company Number: FR-ALEXION-A201200885

PATIENT
  Sex: Female

DRUGS (4)
  1. LAMICTAL [Suspect]
     Dosage: 40 MG, IN THE AM
  2. SOLIRIS [Suspect]
     Indication: HAEMOLYTIC URAEMIC SYNDROME
     Dosage: UNK
     Route: 042
     Dates: start: 20110701
  3. LAMICTAL [Suspect]
     Indication: EPILEPSY
     Dosage: 50 MG, BID
  4. LAMICTAL [Suspect]
     Dosage: 35 MG, IN THE PM

REACTIONS (1)
  - CONVULSION [None]
